FAERS Safety Report 5796976-0 (Version None)
Quarter: 2008Q2

REPORT INFORMATION
  Report Type: 
  Country: None (occurrence: None)
  Receive Date: 20080618
  Receipt Date: 20070709
  Transmission Date: 20081010
  Serious: No
  Sender: FDA-Public Use
  Company Number: 200711753US

PATIENT
  Age: 64 Year
  Sex: Female

DRUGS (16)
  1. LANTUS [Suspect]
     Indication: TYPE 2 DIABETES MELLITUS
     Dosage: 15 U BID INJ
     Route: 042
  2. OPTICLIK [Suspect]
     Indication: TYPE 2 DIABETES MELLITUS
  3. NOVOLOG [Concomitant]
  4. METFORMIN HCL [Concomitant]
  5. SYNTHROID [Concomitant]
  6. PANTOPRAZOLE SODIUM [Concomitant]
  7. SPIRONOLACTONE [Concomitant]
  8. ESTROGENS CONJUGATED (PREMARIN /0073001/) [Concomitant]
  9. FEXOFENADINE (ALLEGRA /0134201/) [Concomitant]
  10. IBUPROFEN TABLETS [Concomitant]
  11. DIPHENHYDRAMINE HCL [Concomitant]
  12. SULFAMETHOXAZOLE, TRIMETHOPRIM (ALTRIM) [Concomitant]
  13. CARDIZEM CD [Concomitant]
  14. ASCORBIC ACID (VITAMIN C) [Concomitant]
  15. FOLIC ACID W/VITAMIN B NOS [Concomitant]
  16. CHROMIUM [Concomitant]

REACTIONS (5)
  - BLOOD GLUCOSE DECREASED [None]
  - BLOOD GLUCOSE INCREASED [None]
  - DRUG INEFFECTIVE [None]
  - INJECTION SITE HAEMORRHAGE [None]
  - SINUSITIS [None]
